FAERS Safety Report 19300752 (Version 1)
Quarter: 2021Q2

REPORT INFORMATION
  Report Type: Spontaneous
  Country: AU (occurrence: AU)
  Receive Date: 20210525
  Receipt Date: 20210525
  Transmission Date: 20210717
  Serious: Yes (Hospitalization, Other)
  Sender: FDA-Public Use
  Company Number: AU-LUPIN PHARMACEUTICALS INC.-2021-08164

PATIENT
  Age: 78 Year
  Sex: Male

DRUGS (1)
  1. H2NAO4P ??? H2O AND NA2HPO4 [Suspect]
     Active Substance: SODIUM PHOSPHATE, DIBASIC, ANHYDROUS\SODIUM PHOSPHATE, MONOBASIC, MONOHYDRATE
     Indication: CONSTIPATION
     Dosage: UNK (RECTAL ENEMA)
     Route: 054

REACTIONS (3)
  - Rectal haemorrhage [Unknown]
  - Proctalgia [Unknown]
  - Skin necrosis [Unknown]
